FAERS Safety Report 8181020-0 (Version None)
Quarter: 2012Q1

REPORT INFORMATION
  Report Type: 
  Country: None (occurrence: None)
  Receive Date: 20120302
  Receipt Date: 20120224
  Transmission Date: 20120608
  Serious: Yes (Other)
  Sender: FDA-Public Use
  Company Number: CA-PFIZER INC-2012049815

PATIENT
  Age: 74 Year
  Sex: Female

DRUGS (3)
  1. LATANOPROST [Suspect]
     Indication: GLAUCOMA
     Dosage: 1 GTT, 1X/DAY IN BOTH EYES
     Route: 047
  2. ASPIRIN [Concomitant]
     Indication: CARDIOVASCULAR EVENT PROPHYLAXIS
     Dosage: 81 MG, 1X/DAY
  3. ADALAT [Concomitant]
     Indication: HYPERTENSION
     Dosage: 30 MG, 1X/DAY

REACTIONS (5)
  - EYE PAIN [None]
  - VISION BLURRED [None]
  - EYE INFECTION [None]
  - EYELID MARGIN CRUSTING [None]
  - PRODUCT SUBSTITUTION ISSUE [None]
